FAERS Safety Report 9641272 (Version 1)
Quarter: 2013Q4

REPORT INFORMATION
  Report Type: Spontaneous
  Country: US (occurrence: None)
  Receive Date: 20131022
  Receipt Date: 20131022
  Transmission Date: 20140711
  Serious: Yes (Hospitalization)
  Sender: FDA-Public Use
  Company Number: None

PATIENT
  Age: 80 Year
  Sex: Female

DRUGS (9)
  1. XARELTO [Suspect]
     Dosage: 1 TAB BID ORAL
     Route: 048
     Dates: start: 20130612, end: 20130626
  2. DOXYCYCLINE [Concomitant]
  3. LANTUS [Concomitant]
  4. NOVOLOG [Concomitant]
  5. LEVOTHYROXINE [Concomitant]
  6. CYANOCOBALAMIN [Concomitant]
  7. ISOSORBIDE MONOITRATE [Concomitant]
  8. PREDNISONE [Concomitant]
  9. GLIPIZIDE [Concomitant]

REACTIONS (1)
  - Gastrointestinal haemorrhage [None]
